FAERS Safety Report 6521446-1 (Version None)
Quarter: 2009Q4

REPORT INFORMATION
  Report Type: 
  Country: None (occurrence: None)
  Receive Date: 20091230
  Receipt Date: 20091221
  Transmission Date: 20100525
  Serious: Yes (Other)
  Sender: FDA-Public Use
  Company Number: IE-ASTRAZENECA-2009SE27013

PATIENT
  Age: 691 Month
  Sex: Female

DRUGS (2)
  1. NEXIUM [Suspect]
     Indication: BARRETT'S OESOPHAGUS
     Route: 048
     Dates: start: 20061101
  2. LECITHIN [Concomitant]
     Route: 065

REACTIONS (2)
  - JOINT STIFFNESS [None]
  - MUSCLE SPASMS [None]
